FAERS Safety Report 6017414-9 (Version None)
Quarter: 2008Q4

REPORT INFORMATION
  Report Type: 
  Country: None (occurrence: None)
  Receive Date: 20081223
  Receipt Date: 20081215
  Transmission Date: 20090506
  Serious: Yes (Other)
  Sender: FDA-Public Use
  Company Number: PHHY2008CH31946

PATIENT
  Sex: Female

DRUGS (4)
  1. ZOMETA [Suspect]
     Indication: METASTASES TO BONE
     Dosage: 5 MG, QMO
     Route: 042
     Dates: start: 20050101, end: 20081215
  2. ENDOXAN [Concomitant]
     Indication: BREAST CANCER
     Dosage: 50 MG/DAY
  3. METHOTREXATE [Concomitant]
     Dosage: 5 MG, QW
  4. MADOPAR [Concomitant]
     Indication: PARKINSON'S DISEASE
     Dosage: UNK

REACTIONS (2)
  - BONE LESION [None]
  - OSTEONECROSIS [None]
